FAERS Safety Report 6754734-4 (Version None)
Quarter: 2010Q2

REPORT INFORMATION
  Report Type: 
  Country: None (occurrence: None)
  Receive Date: 20100603
  Receipt Date: 20100526
  Transmission Date: 20101027
  Serious: Yes (Other)
  Sender: FDA-Public Use
  Company Number: BR-ABBOTT-10P-020-0647114-00

PATIENT
  Sex: Female
  Weight: 84 kg

DRUGS (3)
  1. VALPAKINE [Suspect]
     Indication: CONVULSION
     Dosage: GASTRO-RESISTANT TABLET
     Route: 048
     Dates: start: 20090101
  2. CLONAZEPAM [Concomitant]
     Indication: DRUG USE FOR UNKNOWN INDICATION
  3. SERTRALINE HCL [Concomitant]
     Indication: DRUG USE FOR UNKNOWN INDICATION

REACTIONS (7)
  - ALOPECIA [None]
  - CONVULSION [None]
  - DRUG INEFFECTIVE [None]
  - DRY SKIN [None]
  - DYSGEUSIA [None]
  - ERYTHEMA [None]
  - WEIGHT INCREASED [None]
